FAERS Safety Report 17538266 (Version 1)
Quarter: 2020Q1

REPORT INFORMATION
  Report Type: Spontaneous
  Country: FR (occurrence: FR)
  Receive Date: 20200313
  Receipt Date: 20200313
  Transmission Date: 20200409
  Serious: Yes (Death)
  Sender: FDA-Public Use
  Company Number: FR-PFIZER INC-2020107503

PATIENT
  Age: 91 Year
  Sex: Male
  Weight: 73 kg

DRUGS (19)
  1. VINCRISTINE HOSPIRA [Suspect]
     Active Substance: VINCRISTINE
     Indication: NON-HODGKIN^S LYMPHOMA STAGE III
     Dosage: 1 MG, CYCLIC
     Route: 042
     Dates: start: 20180505
  2. LAROXYL [Concomitant]
     Active Substance: AMITRIPTYLINE HYDROCHLORIDE
     Dosage: UNK
  3. PERINDOPRIL [Concomitant]
     Active Substance: PERINDOPRIL
     Dosage: UNK
  4. KARDEGIC [Concomitant]
     Active Substance: ASPIRIN DL-LYSINE
     Dosage: IN SACHET-DOSE
  5. POLARAMINE [Concomitant]
     Active Substance: DEXCHLORPHENIRAMINE MALEATE
     Dosage: STRENGTH: 5 MG/1 ML, FOR 21 DAYS
  6. ZOPHREN [ONDANSETRON HYDROCHLORIDE] [Concomitant]
     Active Substance: ONDANSETRON
     Dosage: FOR 21 DAYS
  7. DOXORUBICINE ACCORD [Suspect]
     Active Substance: DOXORUBICIN
     Indication: NON-HODGKIN^S LYMPHOMA STAGE III
     Dosage: 50 MG, CYCLIC
     Route: 042
     Dates: start: 20180505
  8. TIMOPTOL LP [Concomitant]
     Active Substance: TIMOLOL MALEATE
  9. ENDOXAN [CYCLOPHOSPHAMIDE] [Suspect]
     Active Substance: CYCLOPHOSPHAMIDE
     Indication: NON-HODGKIN^S LYMPHOMA STAGE III
     Dosage: 780 MG, CYCLIC
     Route: 042
     Dates: start: 20180505
  10. AMLODIPINE [Concomitant]
     Active Substance: AMLODIPINE BESYLATE
     Dosage: UNK
  11. CORTANCYL [Suspect]
     Active Substance: PREDNISONE
     Indication: NON-HODGKIN^S LYMPHOMA STAGE III
     Dosage: UNK
     Route: 048
  12. METHYLPREDNISOLONE MYLAN [METHYLPREDNISOLONE HEMISUCCINATE] [Suspect]
     Active Substance: METHYLPREDNISOLONE HEMISUCCINATE
     Indication: NON-HODGKIN^S LYMPHOMA STAGE III
     Dosage: 78 MG, CYCLIC
     Route: 042
     Dates: start: 20180505
  13. XATRAL [ALFUZOSIN HYDROCHLORIDE] [Concomitant]
     Active Substance: ALFUZOSIN
     Dosage: UNK
  14. LOVENOX [Concomitant]
     Active Substance: ENOXAPARIN SODIUM
     Dosage: UNK
  15. MABTHERA [Suspect]
     Active Substance: RITUXIMAB
     Indication: NON-HODGKIN^S LYMPHOMA STAGE III
     Dosage: 740 MG, CYCLIC
     Route: 042
     Dates: start: 20180505
  16. DIFFU K [Concomitant]
     Active Substance: POTASSIUM CHLORIDE
  17. XALATAN [Concomitant]
     Active Substance: LATANOPROST
  18. INDAPAMIDE. [Concomitant]
     Active Substance: INDAPAMIDE
  19. PERFALGAN [Concomitant]
     Active Substance: ACETAMINOPHEN
     Dosage: FOR 21 DAYS

REACTIONS (1)
  - Pneumocystis jirovecii infection [Fatal]

NARRATIVE: CASE EVENT DATE: 20180606
